FAERS Safety Report 10405547 (Version 2)
Quarter: 2014Q4

REPORT INFORMATION
  Report Type: Spontaneous
  Country: US (occurrence: None)
  Receive Date: 20140821
  Receipt Date: 20141205
  Transmission Date: 20150528
  Serious: Yes (Death)
  Sender: FDA-Public Use
  Company Number: INS201408-000162

PATIENT
  Sex: Female
  Weight: 66.22 kg

DRUGS (5)
  1. SUBSYS [Suspect]
     Active Substance: FENTANYL
     Indication: BREAKTHROUGH PAIN
     Dosage: 1 SPRAY EVERY 4-6 HRS
     Route: 060
  2. TAXOTERE [Concomitant]
     Active Substance: DOCETAXEL
  3. FENTANYL TRANSDERMAL SYSTEM [Concomitant]
     Active Substance: FENTANYL
  4. PERCOCET [Concomitant]
     Active Substance: ACETAMINOPHEN\OXYCODONE HYDROCHLORIDE
  5. HALAVEN (ERIBULIN) [Concomitant]

REACTIONS (2)
  - Breast cancer stage IV [None]
  - Breast cancer female [None]
